FAERS Safety Report 25196238 (Version 1)
Quarter: 2025Q2

REPORT INFORMATION
  Report Type: Report from Study
  Country: US (occurrence: US)
  Receive Date: 20250415
  Receipt Date: 20250415
  Transmission Date: 20250717
  Serious: Yes (Death, Other)
  Sender: TAKEDA
  Company Number: US-TAKEDA-2024TUS053357

PATIENT
  Sex: Male

DRUGS (12)
  1. FRUQUINTINIB [Suspect]
     Active Substance: FRUQUINTINIB
     Indication: Colon cancer
  2. FRUQUINTINIB [Suspect]
     Active Substance: FRUQUINTINIB
  3. FRUQUINTINIB [Suspect]
     Active Substance: FRUQUINTINIB
  4. FRUQUINTINIB [Suspect]
     Active Substance: FRUQUINTINIB
  5. FRUQUINTINIB [Suspect]
     Active Substance: FRUQUINTINIB
  6. ABILIFY [Concomitant]
     Active Substance: ARIPIPRAZOLE
  7. BACLOFEN [Concomitant]
     Active Substance: BACLOFEN
  8. CLONIDINE [Concomitant]
     Active Substance: CLONIDINE
  9. ELIQUIS [Concomitant]
     Active Substance: APIXABAN
  10. GABAPENTIN [Concomitant]
     Active Substance: GABAPENTIN
  11. MORPHINE SULFATE [Concomitant]
     Active Substance: MORPHINE SULFATE
  12. OXYCODONE [Concomitant]
     Active Substance: OXYCODONE

REACTIONS (13)
  - Death [Fatal]
  - Chapped lips [Not Recovered/Not Resolved]
  - Dry mouth [Not Recovered/Not Resolved]
  - Somnolence [Not Recovered/Not Resolved]
  - Facial pain [Not Recovered/Not Resolved]
  - Skin exfoliation [Unknown]
  - Nausea [Not Recovered/Not Resolved]
  - Pelvic pain [Unknown]
  - Arthralgia [Recovering/Resolving]
  - Fatigue [Unknown]
  - Pain in extremity [Unknown]
  - Diarrhoea [Not Recovered/Not Resolved]
  - Asthenia [Unknown]
